FAERS Safety Report 13820994 (Version 1)
Quarter: 2017Q3

REPORT INFORMATION
  Report Type: Spontaneous
  Country: US (occurrence: US)
  Receive Date: 20170801
  Receipt Date: 20170801
  Transmission Date: 20171127
  Serious: No
  Sender: FDA-Public Use
  Company Number: US-TEVA-735552ACC

PATIENT
  Sex: Female

DRUGS (1)
  1. LORAZEPAM WATSON [Suspect]
     Active Substance: LORAZEPAM
     Route: 065

REACTIONS (2)
  - Rash [Unknown]
  - Dry mouth [Unknown]
